FAERS Safety Report 18437668 (Version 4)
Quarter: 2021Q2

REPORT INFORMATION
  Report Type: Report from Study
  Country: DE (occurrence: DE)
  Receive Date: 20201028
  Receipt Date: 20210503
  Transmission Date: 20210717
  Serious: Yes (Hospitalization, Other)
  Sender: FDA-Public Use
  Company Number: DE-AMGEN-DEUNI2020173860

PATIENT
  Age: 80 Year
  Sex: Male
  Weight: 64 kg

DRUGS (10)
  1. FLUOROURACIL. [Suspect]
     Active Substance: FLUOROURACIL
     Dosage: 703 MILLIGRAM
     Route: 040
     Dates: start: 20200623
  2. DEXAMETHASON MP [DEXAMETHASONE] [Concomitant]
     Indication: PROPHYLAXIS
     Dosage: 4 MILLIGRAM PER CYCLE
     Route: 042
     Dates: start: 20200609
  3. FOLINIC ACID [Suspect]
     Active Substance: LEUCOVORIN
     Dosage: 527 MILLIGRAM
     Route: 065
     Dates: start: 20200623
  4. FLUOROURACIL. [Suspect]
     Active Substance: FLUOROURACIL
     Dosage: 7027 MILLIGRAM
     Route: 040
     Dates: start: 20200609
  5. OXALIPLATIN. [Suspect]
     Active Substance: OXALIPLATIN
     Indication: COLORECTAL CANCER METASTATIC
     Dosage: 149 MILLIGRAM
     Route: 065
     Dates: start: 20200609
  6. FLUOROURACIL. [Suspect]
     Active Substance: FLUOROURACIL
     Indication: COLORECTAL CANCER METASTATIC
     Dosage: 2811 MILLIGRAM
     Route: 042
     Dates: start: 20200609
  7. FOLINIC ACID [Suspect]
     Active Substance: LEUCOVORIN
     Indication: COLORECTAL CANCER METASTATIC
     Dosage: 5270 MILLIGRAM
     Route: 065
     Dates: start: 20200609
  8. OXALIPLATIN. [Suspect]
     Active Substance: OXALIPLATIN
     Dosage: 112 MILLIGRAM
     Route: 065
     Dates: start: 20200818
  9. PANITUMUMAB [Suspect]
     Active Substance: PANITUMUMAB
     Indication: COLORECTAL CANCER METASTATIC
     Dosage: 384 MILLIGRAM
     Route: 042
     Dates: start: 20200623
  10. GRANISETRON HAMELN [Concomitant]
     Indication: PROPHYLAXIS
     Dosage: 1 MILLIGRAM PER CYCLE
     Route: 042
     Dates: start: 20200609

REACTIONS (1)
  - Neutropenia [Recovered/Resolved]

NARRATIVE: CASE EVENT DATE: 20200801
